FAERS Safety Report 8800680 (Version 1)
Quarter: 2012Q4

REPORT INFORMATION
  Report Type: Report from Study
  Country: US (occurrence: US)
  Receive Date: 20120921
  Receipt Date: 20120921
  Transmission Date: 20130627
  Serious: Yes (Hospitalization)
  Sender: FDA-Public Use
  Company Number: US-ROCHE-1129140

PATIENT
  Age: 65 Year
  Sex: Female

DRUGS (2)
  1. CELLCEPT [Suspect]
     Indication: PRODUCT USED FOR UNKNOWN INDICATION
     Route: 065
     Dates: end: 20120831
  2. TREPROSTINIL [Suspect]
     Indication: COR PULMONALE CHRONIC
     Route: 065
     Dates: start: 20110309

REACTIONS (2)
  - Liver disorder [Unknown]
  - Renal disorder [Unknown]
